FAERS Safety Report 13041315 (Version 1)
Quarter: 2016Q4

REPORT INFORMATION
  Report Type: Spontaneous
  Country: US (occurrence: US)
  Receive Date: 20161219
  Receipt Date: 20161219
  Transmission Date: 20170207
  Serious: No
  Sender: FDA-Public Use
  Company Number: US-ROCHE-1075418

PATIENT
  Age: 44 Year
  Sex: Male
  Weight: 71.7 kg

DRUGS (5)
  1. GABAPENTIN. [Concomitant]
     Active Substance: GABAPENTIN
     Indication: NEUROPATHY PERIPHERAL
     Route: 048
  2. ZELBORAF [Suspect]
     Active Substance: VEMURAFENIB
     Indication: MALIGNANT MELANOMA
     Route: 048
     Dates: start: 201112, end: 20120213
  3. ZELBORAF [Suspect]
     Active Substance: VEMURAFENIB
     Dosage: 960MG IN AM AND REDUCED DOSE IN PM 480MG TO 720MG
     Route: 065
     Dates: start: 20120221
  4. OXYCODONE [Concomitant]
     Active Substance: OXYCODONE
     Indication: PAIN
     Route: 065
  5. OXYCONTIN [Concomitant]
     Active Substance: OXYCODONE HYDROCHLORIDE
     Indication: PAIN
     Route: 048
     Dates: start: 201112

REACTIONS (6)
  - Fatigue [Recovering/Resolving]
  - Myalgia [Recovering/Resolving]
  - Pain in extremity [Recovered/Resolved]
  - Decreased appetite [Unknown]
  - Arthralgia [Unknown]
  - Nausea [Unknown]

NARRATIVE: CASE EVENT DATE: 201202
